FAERS Safety Report 22623844 (Version 1)
Quarter: 2023Q2

REPORT INFORMATION
  Report Type: Report from Study
  Country: CO (occurrence: CO)
  Receive Date: 20230621
  Receipt Date: 20230621
  Transmission Date: 20230722
  Serious: Yes (Hospitalization, Other)
  Sender: FDA-Public Use
  Company Number: CO-ASTELLAS-2023US013864

PATIENT
  Age: 62 Year
  Sex: Female
  Weight: 51 kg

DRUGS (2)
  1. TACROLIMUS [Suspect]
     Active Substance: TACROLIMUS
     Indication: Renal transplant
     Route: 048
     Dates: start: 20200208
  2. TACROLIMUS [Suspect]
     Active Substance: TACROLIMUS
     Route: 048

REACTIONS (2)
  - Secondary immunodeficiency [Recovered/Resolved with Sequelae]
  - Gastrointestinal infection [Recovering/Resolving]

NARRATIVE: CASE EVENT DATE: 20230418
